FAERS Safety Report 14456876 (Version 1)
Quarter: 2018Q1

REPORT INFORMATION
  Report Type: Spontaneous
  Country: US (occurrence: US)
  Receive Date: 20180129
  Receipt Date: 20180129
  Transmission Date: 20180509
  Serious: Yes (Life-Threatening)
  Sender: FDA-Public Use
  Company Number: None

PATIENT
  Age: 43 Year
  Sex: Female
  Weight: 57 kg

DRUGS (1)
  1. IRON SUCROSE 400MG IV [Suspect]
     Active Substance: IRON SUCROSE
     Indication: IRON DEFICIENCY ANAEMIA
     Route: 042
     Dates: start: 20171031

REACTIONS (4)
  - Urticaria [None]
  - Tremor [None]
  - Burning sensation [None]
  - Infusion related reaction [None]

NARRATIVE: CASE EVENT DATE: 20171031
